FAERS Safety Report 7928187-4 (Version None)
Quarter: 2011Q4

REPORT INFORMATION
  Report Type: 
  Country: None (occurrence: None)
  Receive Date: 20111118
  Receipt Date: 20111117
  Transmission Date: 20120403
  Serious: No
  Sender: FDA-Public Use
  Company Number: US-B.I. PHARMACEUTICALS,INC./RIDGEFIELD-2011-BP-26425BP

PATIENT
  Sex: Female

DRUGS (13)
  1. LISINOPRIL [Concomitant]
     Indication: HYPERTENSION
     Dosage: 10 MG
     Route: 048
  2. DIGOXIN [Concomitant]
     Indication: ATRIAL FIBRILLATION
     Dosage: 250 MG
     Route: 048
  3. OSCAL W/ VITAMIN D [Concomitant]
     Indication: OSTEOPOROSIS
     Route: 048
  4. SPIRIVA [Suspect]
     Indication: WHEEZING
     Dosage: 18 MCG
     Route: 055
     Dates: start: 20111116
  5. FUROSEMIDE [Concomitant]
     Indication: CARDIAC FAILURE CONGESTIVE
     Dosage: 40 MG
     Route: 048
  6. MULTI-VITAMINS [Concomitant]
     Indication: SUPPLEMENTATION THERAPY
     Route: 048
  7. ALENDROMATE SODIUM [Concomitant]
     Indication: OSTEOPOROSIS
     Route: 048
  8. WARFARIN SODIUM [Concomitant]
     Indication: ATRIAL FIBRILLATION
     Dosage: 4 MG
     Route: 048
  9. SIMVASTATIN [Concomitant]
     Indication: BLOOD CHOLESTEROL INCREASED
     Dosage: 20 MG
     Route: 048
  10. BIOTENE [Concomitant]
     Indication: SUPPLEMENTATION THERAPY
     Dosage: 5000 MG
     Route: 048
  11. ALOE VERA [Concomitant]
     Indication: SUPPLEMENTATION THERAPY
     Dosage: 25 MG
     Route: 048
  12. ASCORBIC ACID [Concomitant]
     Indication: SUPPLEMENTATION THERAPY
     Dosage: 500 MG
     Route: 048
  13. VERAPAMIL [Concomitant]
     Indication: ATRIAL FIBRILLATION
     Dosage: 80 MG
     Route: 048

REACTIONS (3)
  - DIARRHOEA [None]
  - HEADACHE [None]
  - VOMITING [None]
